FAERS Safety Report 9370315 (Version 2)
Quarter: 2013Q3

REPORT INFORMATION
  Report Type: Spontaneous
  Country: US (occurrence: US)
  Receive Date: 20130626
  Receipt Date: 20130814
  Transmission Date: 20140515
  Serious: No
  Sender: FDA-Public Use
  Company Number: US-009507513-1306USA009352

PATIENT
  Sex: 0

DRUGS (1)
  1. PROSCAR [Suspect]
     Route: 048

REACTIONS (1)
  - Ejaculation failure [Unknown]
